FAERS Safety Report 9878563 (Version 5)
Quarter: 2014Q1

REPORT INFORMATION
  Report Type: Report from Study
  Country: DE (occurrence: DE)
  Receive Date: 20140206
  Receipt Date: 20140328
  Transmission Date: 20141002
  Serious: Yes (Hospitalization, Other)
  Sender: FDA-Public Use
  Company Number: DE-BRISTOL-MYERS SQUIBB COMPANY-19467612

PATIENT
  Age: 76 Year
  Sex: Female

DRUGS (2)
  1. ABATACEPT SUBQ INJECTION 125MG/ML [Suspect]
     Indication: RHEUMATOID ARTHRITIS
     Dosage: STOP DATE:1JUL13,?INT ?RESTART 11JUL13?750MG-MAR13?125MG-27MAY13-29AUG13?DRUG INTER?2 WEEK
     Route: 058
     Dates: start: 20130313
  2. METHOTREXATE [Suspect]
     Dosage: INT 1JUL13-11JUL13

REACTIONS (9)
  - Angina pectoris [Recovered/Resolved]
  - Atrial fibrillation [Unknown]
  - Hiatus hernia [Unknown]
  - Type 2 diabetes mellitus [Unknown]
  - Inguinal hernia [Recovered/Resolved]
  - Nasopharyngitis [Recovered/Resolved]
  - Weight decreased [Unknown]
  - Hepatic steatosis [Unknown]
  - Influenza like illness [Unknown]
